FAERS Safety Report 20873185 (Version 1)
Quarter: 2022Q2

REPORT INFORMATION
  Report Type: Spontaneous
  Country: US (occurrence: US)
  Receive Date: 20220525
  Receipt Date: 20220525
  Transmission Date: 20220721
  Serious: No
  Sender: FDA-Public Use
  Company Number: US-BAUSCH-BL-2022-012506

PATIENT
  Age: 79 Year
  Sex: Female

DRUGS (3)
  1. LUMIFY [Suspect]
     Active Substance: BRIMONIDINE TARTRATE
     Indication: Ocular hyperaemia
     Dosage: AS NEEDED
     Route: 047
     Dates: start: 20220518, end: 20220518
  2. LUMIFY [Suspect]
     Active Substance: BRIMONIDINE TARTRATE
  3. REFRESH CLASSIC [Concomitant]
     Active Substance: POLYVINYL ALCOHOL\POVIDONE
     Indication: Product used for unknown indication
     Route: 047

REACTIONS (1)
  - Instillation site pain [Unknown]

NARRATIVE: CASE EVENT DATE: 20220518
